FAERS Safety Report 19056200 (Version 1)
Quarter: 2021Q1

REPORT INFORMATION
  Report Type: Spontaneous
  Country: US (occurrence: US)
  Receive Date: 20210324
  Receipt Date: 20210324
  Transmission Date: 20210420
  Serious: No
  Sender: FDA-Public Use
  Company Number: None

PATIENT
  Sex: Female
  Weight: 63.96 kg

DRUGS (3)
  1. GENERIC FROVA? USED IN 2013. INEFFECTIVE THUR 2016 [Concomitant]
  2. FROVATRIPTAN. [Suspect]
     Active Substance: FROVATRIPTAN
  3. SUMATRIPTAN? TRIAL USE IN 2014?INEFFECTIVE [Concomitant]

REACTIONS (1)
  - Drug ineffective [None]
